FAERS Safety Report 16358930 (Version 5)
Quarter: 2019Q3

REPORT INFORMATION
  Report Type: Spontaneous
  Country: US (occurrence: US)
  Receive Date: 20190527
  Receipt Date: 20190805
  Transmission Date: 20191004
  Serious: Yes (Other)
  Sender: FDA-Public Use
  Company Number: US-SA-2019SA133727

PATIENT
  Age: 82 Year
  Sex: Male

DRUGS (2)
  1. LANTUS SOLOSTAR [Suspect]
     Active Substance: INSULIN GLARGINE
     Indication: TYPE 2 DIABETES MELLITUS
     Dosage: 100 IU, QD
     Route: 065
  2. LANTUS SOLOSTAR [Suspect]
     Active Substance: INSULIN GLARGINE
     Dosage: 100 U, QD
     Route: 065

REACTIONS (11)
  - Product dose omission [Unknown]
  - Loss of consciousness [Unknown]
  - Blood glucose fluctuation [Unknown]
  - Myocardial infarction [Unknown]
  - Nerve compression [Unknown]
  - Product quality issue [Unknown]
  - Hypoacusis [Unknown]
  - Device use issue [Unknown]
  - Malaise [Unknown]
  - Renal disorder [Unknown]
  - Product packaging issue [Unknown]
